FAERS Safety Report 24320584 (Version 2)
Quarter: 2024Q4

REPORT INFORMATION
  Report Type: Spontaneous
  Country: GB (occurrence: GB)
  Receive Date: 20240915
  Receipt Date: 20241213
  Transmission Date: 20250115
  Serious: Yes (Other)
  Sender: AUROBINDO
  Company Number: GB-MHRA-MED-202409041405391010-BPMQY

PATIENT
  Age: 73 Year
  Sex: Female
  Weight: 52 kg

DRUGS (2)
  1. LEVETIRACETAM [Suspect]
     Active Substance: LEVETIRACETAM
     Indication: Frontal lobe epilepsy
     Dosage: 250 MILLIGRAM
     Route: 065
  2. LAMOTRIGINE [Concomitant]
     Active Substance: LAMOTRIGINE
     Indication: Frontal lobe epilepsy
     Dosage: UNK
     Route: 065

REACTIONS (4)
  - Haematoma [Recovered/Resolved]
  - Liver function test increased [Recovered/Resolved with Sequelae]
  - Gastrointestinal pain [Recovered/Resolved]
  - Nausea [Recovered/Resolved]
